FAERS Safety Report 6369367-1 (Version None)
Quarter: 2009Q3

REPORT INFORMATION
  Report Type: 
  Country: None (occurrence: None)
  Receive Date: 20090917
  Receipt Date: 20090908
  Transmission Date: 20100115
  Serious: Yes (Hospitalization)
  Sender: FDA-Public Use
  Company Number: 356714

PATIENT
  Age: 50 Year
  Sex: Male

DRUGS (1)
  1. MARCAINE [Suspect]
     Indication: DRUG USE FOR UNKNOWN INDICATION
     Dosage: NOT REPORTED
     Dates: start: 20090101, end: 20090101

REACTIONS (1)
  - ARTHRITIS INFECTIVE [None]
